FAERS Safety Report 9958316 (Version 1)
Quarter: 2014Q1

REPORT INFORMATION
  Report Type: Report from Study
  Country: US (occurrence: US)
  Receive Date: 20140304
  Receipt Date: 20140304
  Transmission Date: 20141002
  Serious: No
  Sender: FDA-Public Use
  Company Number: US-ABBVIE-13P-163-1095194-00

PATIENT
  Age: 50 Year
  Sex: Male
  Weight: 86.26 kg

DRUGS (3)
  1. HUMIRA [Suspect]
     Indication: PSORIASIS
     Dates: start: 20120414, end: 20120422
  2. HUMIRA [Suspect]
     Dates: start: 20130313
  3. ATENOLOL [Concomitant]
     Indication: HYPERTENSION

REACTIONS (6)
  - Oral disorder [Recovered/Resolved]
  - Paraesthesia [Recovered/Resolved]
  - Paraesthesia [Recovered/Resolved]
  - Flushing [Recovered/Resolved]
  - Psoriasis [Not Recovered/Not Resolved]
  - Herpes zoster [Recovered/Resolved]
